FAERS Safety Report 10457356 (Version 1)
Quarter: 2014Q3

REPORT INFORMATION
  Report Type: Spontaneous
  Country: DE (occurrence: DE)
  Receive Date: 20140916
  Receipt Date: 20140916
  Transmission Date: 20150326
  Serious: Yes (Hospitalization)
  Sender: FDA-Public Use
  Company Number: DE-TEVA-507545GER

PATIENT
  Age: 57 Year
  Sex: Female

DRUGS (3)
  1. METOPROLOL [Concomitant]
     Active Substance: METOPROLOL
     Indication: HYPERTONIA
     Dosage: 200 MILLIGRAM DAILY;
     Route: 065
  2. THYROXIN [Concomitant]
     Active Substance: LEVOTHYROXINE
     Indication: THYROID DISORDER
     Dosage: 125 MICROGRAM DAILY;
     Route: 065
  3. AZYTHROMYCIN-RATIOPHARM 500 MG FILMTABLETTEN [Suspect]
     Active Substance: AZITHROMYCIN ANHYDROUS
     Indication: LOWER RESPIRATORY TRACT INFECTION
     Dosage: 500 MILLIGRAM DAILY;
     Route: 048
     Dates: start: 20140116, end: 20140116

REACTIONS (11)
  - Lip discolouration [Unknown]
  - Contusion [None]
  - Cardiac flutter [None]
  - Fear of death [Unknown]
  - Pulmonary oedema [None]
  - Respiratory distress [Unknown]
  - Atrial fibrillation [Unknown]
  - Lung disorder [Unknown]
  - Limb discomfort [Unknown]
  - Pain [Not Recovered/Not Resolved]
  - Heart rate increased [Unknown]

NARRATIVE: CASE EVENT DATE: 20140116
